FAERS Safety Report 23393244 (Version 1)
Quarter: 2024Q1

REPORT INFORMATION
  Report Type: Spontaneous
  Country: US (occurrence: None)
  Receive Date: 20240111
  Receipt Date: 20240111
  Transmission Date: 20240409
  Serious: Yes (Other)
  Sender: FDA-Public Use
  Company Number: None

PATIENT
  Age: 47 Year
  Sex: Male
  Weight: 101.25 kg

DRUGS (1)
  1. CREON [Suspect]
     Active Substance: PANCRELIPASE AMYLASE\PANCRELIPASE LIPASE\PANCRELIPASE PROTEASE
     Indication: Pancreatic failure
     Dosage: OTHER QUANTITY : 2 CAPSULE(S);?FREQUENCY : 3 TIMES A DAY;?
     Route: 048
     Dates: start: 20231122, end: 20231215

REACTIONS (8)
  - Abdominal distension [None]
  - Abdominal pain upper [None]
  - Back pain [None]
  - Food allergy [None]
  - Gluten sensitivity [None]
  - Eructation [None]
  - Tracheal obstruction [None]
  - Dyspnoea [None]

NARRATIVE: CASE EVENT DATE: 20231215
